FAERS Safety Report 24877736 (Version 1)
Quarter: 2025Q1

REPORT INFORMATION
  Report Type: Spontaneous
  Country: GB (occurrence: GB)
  Receive Date: 20250123
  Receipt Date: 20250123
  Transmission Date: 20250409
  Serious: Yes (Hospitalization)
  Sender: ACCORD
  Company Number: GB-Accord-465478

PATIENT
  Age: 63 Year
  Sex: Female

DRUGS (2)
  1. METHOTREXATE [Suspect]
     Active Substance: METHOTREXATE
     Indication: Rheumatoid arthritis
  2. PREDNISOLONE [Suspect]
     Active Substance: PREDNISOLONE
     Indication: Bronchiectasis

REACTIONS (4)
  - Mycobacterium marinum infection [Recovered/Resolved]
  - Neutropenic sepsis [Recovered/Resolved]
  - Skin necrosis [Recovered/Resolved]
  - Off label use [Unknown]
